FAERS Safety Report 4409460-3 (Version None)
Quarter: 2004Q3

REPORT INFORMATION
  Report Type: 
  Country: None (occurrence: None)
  Receive Date: 20040723
  Receipt Date: 20040711
  Transmission Date: 20050211
  Serious: Yes (Life-Threatening, Hospitalization, Other)
  Sender: FDA-Public Use
  Company Number: 2004047271

PATIENT
  Age: 56 Year
  Sex: Female

DRUGS (3)
  1. VIAGRA [Suspect]
     Indication: ILL-DEFINED DISORDER
     Dosage: ORAL
     Route: 048
  2. NITROGLYCERIN [Concomitant]
  3. ANTIHYPERTENSIVE (ANTIHYPERTENSIVES) [Concomitant]

REACTIONS (3)
  - AMNESIA [None]
  - CARDIAC ARREST [None]
  - CEREBRAL ISCHAEMIA [None]
